FAERS Safety Report 5299472-2 (Version None)
Quarter: 2007Q2

REPORT INFORMATION
  Report Type: 
  Country: None (occurrence: None)
  Receive Date: 20070417
  Receipt Date: 20070411
  Transmission Date: 20071010
  Serious: Yes (Death, Life-Threatening)
  Sender: FDA-Public Use
  Company Number: NL-ELI_LILLY_AND_COMPANY-NL200701002877

PATIENT
  Age: 33 Year
  Sex: Male
  Weight: 70 kg

DRUGS (1)
  1. GEMZAR [Suspect]
     Indication: SEMINOMA
     Dosage: 900 MG/M2, UNK
     Dates: start: 20061001

REACTIONS (2)
  - DEATH [None]
  - HAEMOLYTIC URAEMIC SYNDROME [None]
